FAERS Safety Report 8674274 (Version 2)
Quarter: 2013Q2

REPORT INFORMATION
  Report Type: Spontaneous
  Country: FR (occurrence: FR)
  Receive Date: 20120719
  Receipt Date: 20130521
  Transmission Date: 20140414
  Serious: Yes (Hospitalization)
  Sender: FDA-Public Use
  Company Number: FR-BAYER-2012-072054

PATIENT
  Age: 56 Year
  Sex: Male
  Weight: 88 kg

DRUGS (2)
  1. BETAFERON [Suspect]
     Indication: MULTIPLE SCLEROSIS
     Dosage: UNK
     Dates: start: 2002
  2. BETAFERON [Suspect]
     Indication: MULTIPLE SCLEROSIS
     Dosage: UNK
     Dates: start: 20120709, end: 20130202

REACTIONS (9)
  - Cellulitis staphylococcal [None]
  - Rash [None]
  - Infection [None]
  - Pyrexia [None]
  - Pain [None]
  - Muscular weakness [None]
  - Wound [None]
  - Cellulitis [None]
  - Pyrexia [None]
